FAERS Safety Report 23661018 (Version 1)
Quarter: 2024Q1

REPORT INFORMATION
  Report Type: Report from Study
  Country: US (occurrence: US)
  Receive Date: 20240322
  Receipt Date: 20240322
  Transmission Date: 20240410
  Serious: Yes (Other)
  Sender: FDA-Public Use
  Company Number: US-Merck Healthcare KGaA-2024014232

PATIENT
  Sex: Female

DRUGS (2)
  1. REBIF [Suspect]
     Active Substance: INTERFERON BETA-1A
     Indication: Multiple sclerosis
     Dates: start: 20060605, end: 20060703
  2. REBIF [Suspect]
     Active Substance: INTERFERON BETA-1A

REACTIONS (7)
  - Squamous cell carcinoma of skin [Unknown]
  - Basal cell carcinoma [Unknown]
  - Macular degeneration [Unknown]
  - Heart rate irregular [Unknown]
  - Osteoporosis [Unknown]
  - Dry eye [Unknown]
  - Hepatitis A [Unknown]
